FAERS Safety Report 4631451-8 (Version None)
Quarter: 2005Q2

REPORT INFORMATION
  Report Type: 
  Country: None (occurrence: None)
  Receive Date: 20050407
  Receipt Date: 20050324
  Transmission Date: 20051028
  Serious: Yes (Other)
  Sender: FDA-Public Use
  Company Number: SOLAGE0500004

PATIENT
  Age: 74 Year
  Sex: Male

DRUGS (1)
  1. SOLAGE [Suspect]
     Indication: LENTIGO
     Dosage: QD
     Dates: start: 20040201, end: 20040701

REACTIONS (3)
  - APPLICATION SITE REACTION [None]
  - MENTAL DISORDER [None]
  - VITILIGO [None]
